FAERS Safety Report 12319643 (Version 2)
Quarter: 2016Q4

REPORT INFORMATION
  Report Type: Spontaneous
  Country: US (occurrence: US)
  Receive Date: 20160429
  Receipt Date: 20161013
  Transmission Date: 20170207
  Serious: No
  Sender: FDA-Public Use
  Company Number: US-ROCHE-1608474

PATIENT
  Sex: Female

DRUGS (1)
  1. ESBRIET [Suspect]
     Active Substance: PIRFENIDONE
     Indication: IDIOPATHIC PULMONARY FIBROSIS
     Dosage: 3 CAPSULES THREE TIMES DAILY.
     Route: 048
     Dates: start: 20150418

REACTIONS (5)
  - Sunburn [Unknown]
  - Fatigue [Unknown]
  - Pruritus [Unknown]
  - Rash [Recovered/Resolved]
  - Photosensitivity reaction [Unknown]
